FAERS Safety Report 25343812 (Version 2)
Quarter: 2025Q3

REPORT INFORMATION
  Report Type: Spontaneous
  Country: US (occurrence: US)
  Receive Date: 20250521
  Receipt Date: 20250826
  Transmission Date: 20251020
  Serious: Yes (Other)
  Sender: MERCK SHARP & DOHME LLC
  Company Number: US-009507513-2285494

PATIENT
  Age: 52 Year
  Sex: Female
  Weight: 43.998 kg

DRUGS (19)
  1. SOTATERCEPT [Suspect]
     Active Substance: SOTATERCEPT
  2. SOTATERCEPT [Suspect]
     Active Substance: SOTATERCEPT
  3. SOTATERCEPT [Suspect]
     Active Substance: SOTATERCEPT
  4. SOTATERCEPT [Suspect]
     Active Substance: SOTATERCEPT
  5. REMODULIN [Suspect]
     Active Substance: TREPROSTINIL
     Indication: Pulmonary arterial hypertension
     Route: 042
     Dates: start: 20230628
  6. WARFARIN SODIUM [Concomitant]
     Active Substance: WARFARIN SODIUM
  7. ALDACTONE [Concomitant]
     Active Substance: SPIRONOLACTONE
  8. LASIX [Concomitant]
     Active Substance: FUROSEMIDE
  9. OPSUMIT [Concomitant]
     Active Substance: MACITENTAN
  10. PROCHLORPERAZINE MALEATE [Concomitant]
     Active Substance: PROCHLORPERAZINE MALEATE
  11. Sertraline HCL (Sertraline hydrochloride) [Concomitant]
  12. OXYGEN [Concomitant]
     Active Substance: OXYGEN
  13. Sertraline HCL (Sertraline hydrochloride) [Concomitant]
  14. ATIVAN [Concomitant]
     Active Substance: LORAZEPAM
  15. FAMOTIDINE [Concomitant]
     Active Substance: FAMOTIDINE
  16. DIGOXIN [Concomitant]
     Active Substance: DIGOXIN
  17. ONDANSETRON HYDROCHLORIDE [Concomitant]
     Active Substance: ONDANSETRON HYDROCHLORIDE
  18. POTASSIUM CHLORIDE [Concomitant]
     Active Substance: POTASSIUM CHLORIDE
  19. OXYGEN [Concomitant]
     Active Substance: OXYGEN

REACTIONS (3)
  - Metastases to liver [Unknown]
  - Influenza like illness [Unknown]
  - Platelet count decreased [Unknown]

NARRATIVE: CASE EVENT DATE: 20230624
